FAERS Safety Report 20114383 (Version 2)
Quarter: 2021Q4

REPORT INFORMATION
  Report Type: Spontaneous
  Country: PL (occurrence: PL)
  Receive Date: 20211125
  Receipt Date: 20211207
  Transmission Date: 20220303
  Serious: Yes (Death, Hospitalization)
  Sender: FDA-Public Use
  Company Number: PL-TEVA-2021-PL-1979927

PATIENT
  Age: 28 Year
  Sex: Male

DRUGS (3)
  1. CYCLOSPORINE [Suspect]
     Active Substance: CYCLOSPORINE
     Indication: Haemophagocytic lymphohistiocytosis
     Dosage: RECEIVED IN A DOSE ADJUSTED TO THE BLOOD CONCENTRATION OF THE DRUG
     Route: 065
     Dates: start: 201907
  2. DEXAMETHASONE [Suspect]
     Active Substance: DEXAMETHASONE
     Indication: Haemophagocytic lymphohistiocytosis
     Dosage: 10 MG/M2 DAILY;
     Route: 065
     Dates: start: 201907
  3. VEPESID [Suspect]
     Active Substance: ETOPOSIDE
     Indication: Haemophagocytic lymphohistiocytosis
     Dosage: RECEIVED IN A DOSE ADJUSTED TO ESTIMATED GLOMERULAR FILTRATION RATE. RECEIVED A TOTAL 2 DOSES OF ...
     Route: 065
     Dates: start: 201907

REACTIONS (1)
  - Drug ineffective [Fatal]

NARRATIVE: CASE EVENT DATE: 20190701
